FAERS Safety Report 17985184 (Version 1)
Quarter: 2020Q3

REPORT INFORMATION
  Report Type: Spontaneous
  Country: FR (occurrence: FR)
  Receive Date: 20200706
  Receipt Date: 20200706
  Transmission Date: 20201103
  Serious: Yes (Hospitalization, Disabling, Congenital Anomaly)
  Sender: FDA-Public Use
  Company Number: FR-ROCHE-2636457

PATIENT
  Sex: Female

DRUGS (3)
  1. DEPAKINE [VALPROIC ACID] [Suspect]
     Active Substance: VALPROIC ACID
     Indication: PRODUCT USED FOR UNKNOWN INDICATION
     Dosage: 3 DF, QD
     Route: 064
     Dates: start: 198102, end: 19810903
  2. CLONAZEPAM. [Suspect]
     Active Substance: CLONAZEPAM
     Indication: PRODUCT USED FOR UNKNOWN INDICATION
     Route: 064
     Dates: start: 198102, end: 19810903
  3. ALEPSAL (PHENOBARBITAL) [Suspect]
     Active Substance: PHENOBARBITAL
     Indication: PRODUCT USED FOR UNKNOWN INDICATION
     Dosage: 1 DF, QD
     Route: 064
     Dates: start: 198102, end: 19810903

REACTIONS (20)
  - Diplegia [Unknown]
  - Talipes [Unknown]
  - Hypotonia [Unknown]
  - Foot deformity [Unknown]
  - Congenital hand malformation [Unknown]
  - Disorientation [Unknown]
  - Autism spectrum disorder [Unknown]
  - Intellectual disability [Unknown]
  - Congenital central nervous system anomaly [Unknown]
  - Tremor [Unknown]
  - Behaviour disorder [Unknown]
  - Congenital eyelid malformation [Unknown]
  - Developmental delay [Unknown]
  - Limb malformation [Unknown]
  - Psychomotor retardation [Unknown]
  - Foetal exposure during pregnancy [Unknown]
  - Extensor plantar response [Unknown]
  - Dysmorphism [Unknown]
  - Strabismus [Unknown]
  - Language disorder [Unknown]
